FAERS Safety Report 26037159 (Version 1)
Quarter: 2025Q4

REPORT INFORMATION
  Report Type: Spontaneous
  Country: US (occurrence: US)
  Receive Date: 20251112
  Receipt Date: 20251112
  Transmission Date: 20260118
  Serious: No
  Sender: CIPHER
  Company Number: US-CIPHER-2025-US-000065

PATIENT
  Age: 50 Year
  Sex: Female

DRUGS (3)
  1. TRAMADOL HYDROCHLORIDE [Suspect]
     Active Substance: TRAMADOL HYDROCHLORIDE
     Indication: Post procedural complication
     Dates: start: 202510
  2. RECORLEV [Suspect]
     Active Substance: LEVOKETOCONAZOLE
     Indication: Cushing^s syndrome
     Route: 048
     Dates: start: 20251001
  3. METHOCARBAMOL [Suspect]
     Active Substance: METHOCARBAMOL
     Indication: Post procedural complication

REACTIONS (5)
  - Feeling abnormal [Unknown]
  - Feeling cold [Unknown]
  - Hypersomnia [Unknown]
  - Drug interaction [Unknown]
  - Decreased appetite [Unknown]
